FAERS Safety Report 19181809 (Version 2)
Quarter: 2021Q2

REPORT INFORMATION
  Report Type: Spontaneous
  Country: US (occurrence: US)
  Receive Date: 20210426
  Receipt Date: 20210428
  Transmission Date: 20210717
  Serious: No
  Sender: FDA-Public Use
  Company Number: US-TAKEDA-2021TUS026094

PATIENT
  Age: 75 Year
  Sex: Female

DRUGS (2)
  1. PREVACID SOLUTAB [Suspect]
     Active Substance: LANSOPRAZOLE
     Dosage: 15 MILLIGRAM
     Route: 065
  2. PREVACID SOLUTAB [Suspect]
     Active Substance: LANSOPRAZOLE
     Indication: PRODUCT USED FOR UNKNOWN INDICATION
     Dosage: 30 MILLIGRAM
     Route: 065

REACTIONS (10)
  - Salivary gland pain [Unknown]
  - Condition aggravated [Unknown]
  - Dry eye [Unknown]
  - Pain [Unknown]
  - Arthralgia [Unknown]
  - Alopecia [Unknown]
  - Dry mouth [Unknown]
  - Meniscus injury [Unknown]
  - False positive investigation result [Unknown]
  - Back pain [Unknown]
